FAERS Safety Report 20558048 (Version 1)
Quarter: 2022Q1

REPORT INFORMATION
  Report Type: Spontaneous
  Country: US (occurrence: US)
  Receive Date: 20220307
  Receipt Date: 20220307
  Transmission Date: 20220423
  Serious: No
  Sender: FDA-Public Use
  Company Number: US-ALNYLAM PHARMACEUTICALS, INC.-ALN-2022-000689

PATIENT

DRUGS (1)
  1. GIVLAARI [Suspect]
     Active Substance: GIVOSIRAN SODIUM
     Indication: Porphyria
     Dosage: STANDARD DOSE, IN THE FAT^
     Route: 058
     Dates: start: 202104

REACTIONS (5)
  - Porphyria acute [Recovering/Resolving]
  - Injection site bruising [Unknown]
  - Fatigue [Unknown]
  - Asthenia [Unknown]
  - Incorrect route of product administration [Unknown]

NARRATIVE: CASE EVENT DATE: 20220216
